FAERS Safety Report 8369492-X (Version None)
Quarter: 2012Q2

REPORT INFORMATION
  Report Type: 
  Country: None (occurrence: None)
  Receive Date: 20120518
  Receipt Date: 20120515
  Transmission Date: 20120825
  Serious: Yes (Hospitalization, Other)
  Sender: FDA-Public Use
  Company Number: US-PFIZER INC-2012118159

PATIENT
  Sex: Female

DRUGS (1)
  1. CHANTIX [Suspect]
     Dosage: UNK
     Dates: start: 20070601

REACTIONS (7)
  - ANXIETY [None]
  - DEPRESSION [None]
  - AGITATION [None]
  - ABNORMAL BEHAVIOUR [None]
  - IRRITABILITY [None]
  - SUICIDE ATTEMPT [None]
  - ANGER [None]
